FAERS Safety Report 8363560-4 (Version None)
Quarter: 2012Q2

REPORT INFORMATION
  Report Type: 
  Country: None (occurrence: None)
  Receive Date: 20120516
  Receipt Date: 20120507
  Transmission Date: 20120825
  Serious: Yes (Other)
  Sender: FDA-Public Use
  Company Number: US-JNJFOC-20120405404

PATIENT
  Sex: Female

DRUGS (3)
  1. REMICADE [Suspect]
     Indication: ANKYLOSING SPONDYLITIS
     Route: 042
  2. REMICADE [Suspect]
     Dosage: 23RD INFLIXIMAB INFUSION
     Route: 042
     Dates: start: 20120410
  3. REMICADE [Suspect]
     Route: 042

REACTIONS (1)
  - IRITIS [None]
